FAERS Safety Report 23392681 (Version 1)
Quarter: 2024Q1

REPORT INFORMATION
  Report Type: Spontaneous
  Country: US (occurrence: US)
  Receive Date: 20240111
  Receipt Date: 20240111
  Transmission Date: 20240410
  Serious: Yes (Hospitalization, Other)
  Sender: FDA-Public Use
  Company Number: US-SK LIFE SCIENCE, INC.-SKPVG-2024-000007

PATIENT

DRUGS (14)
  1. XCOPRI [Suspect]
     Active Substance: CENOBAMATE
     Indication: Status epilepticus
     Dosage: UNK
     Route: 065
     Dates: start: 202310
  2. XCOPRI [Suspect]
     Active Substance: CENOBAMATE
     Dosage: HE HAS THE 50MG PILLS, AND HE GETS THAT QUARTERED, AND THEN ONE OF THOSE QUARTERS IS CRUSHED WITH 10
     Route: 065
  3. CANNABIDIOL [Concomitant]
     Active Substance: CANNABIDIOL
     Indication: Product used for unknown indication
     Dosage: 1.2MLS TWICE DAILY (100MG/ML)
     Route: 065
  4. LACOSAMIDE [Concomitant]
     Active Substance: LACOSAMIDE
     Indication: Product used for unknown indication
     Dosage: 10MG/ML, 5.7MLS TWICE DAILY
     Route: 065
  5. KEPPRA [Concomitant]
     Active Substance: LEVETIRACETAM
     Indication: Product used for unknown indication
     Dosage: 100MG/ML, 3MLS THREE TIMES DAILY
     Route: 065
  6. LEVOCARNITINE [Concomitant]
     Active Substance: LEVOCARNITINE
     Indication: Product used for unknown indication
     Dosage: 1GRAM/10MLS, 6MLS TWICE DAILY
     Route: 065
  7. K PHOS NEUTRAL [Concomitant]
     Active Substance: POTASSIUM PHOSPHATE, MONOBASIC\SODIUM PHOSPHATE, DIBASIC, ANHYDROUS\SODIUM PHOSPHATE, MONOBASIC, MON
     Indication: Product used for unknown indication
     Dosage: 2 PACKETS PER DAY
     Route: 065
  8. SODIUM BICARBONATE [Concomitant]
     Active Substance: SODIUM BICARBONATE
     Indication: Product used for unknown indication
     Dosage: 650 MILLIGRAM, BID
     Route: 065
  9. VALPROIC ACID [Concomitant]
     Active Substance: VALPROIC ACID
     Indication: Product used for unknown indication
     Dosage: 50MG/ML, 11MLS TWICE DAILY
     Route: 065
  10. PEPCID                             /00305201/ [Concomitant]
     Indication: Product used for unknown indication
     Dosage: 40MG/5MLS, 0.75MLS TWICE DAILY
     Route: 065
  11. NALTREXONE [Concomitant]
     Active Substance: NALTREXONE
     Indication: Product used for unknown indication
     Dosage: TOPICAL WRIST CREAM, HE TAKES ONE CLICK FROM THE DISPENSER TWICE DAILY
     Route: 061
  12. ALBUTEROL [Concomitant]
     Active Substance: ALBUTEROL
     Indication: Product used for unknown indication
     Dosage: ALBUTEROL HYPERTONIC,  3 TIMES DAILY
     Route: 065
  13. FLOVENT [Concomitant]
     Active Substance: FLUTICASONE PROPIONATE
     Indication: Product used for unknown indication
     Dosage: 3 TIMES DAILY
     Route: 065
  14. DIAZEPAM [Concomitant]
     Active Substance: DIAZEPAM
     Indication: Product used for unknown indication
     Dosage: 5 MILLIGRAM
     Route: 054

REACTIONS (8)
  - Pneumonia aspiration [Unknown]
  - Product use issue [Not Recovered/Not Resolved]
  - Product use in unapproved indication [Not Recovered/Not Resolved]
  - Incorrect route of product administration [Not Recovered/Not Resolved]
  - Product preparation issue [Not Recovered/Not Resolved]
  - Wrong technique in product usage process [Not Recovered/Not Resolved]
  - Seizure [Unknown]
  - Intentional product use issue [Not Recovered/Not Resolved]
